FAERS Safety Report 13178314 (Version 3)
Quarter: 2017Q2

REPORT INFORMATION
  Report Type: Spontaneous
  Country: US (occurrence: US)
  Receive Date: 20170202
  Receipt Date: 20170519
  Transmission Date: 20170830
  Serious: No
  Sender: FDA-Public Use
  Company Number: US-009507513-1701USA009797

PATIENT
  Age: 24 Year
  Sex: Female
  Weight: 54.42 kg

DRUGS (3)
  1. NEXPLANON [Suspect]
     Active Substance: ETONOGESTREL
     Dosage: ONE ROD/THREE YEARS
     Route: 059
     Dates: start: 20170120
  2. NEXPLANON [Suspect]
     Active Substance: ETONOGESTREL
     Dosage: ONE ROD/THREE YEARS
     Dates: start: 20170120, end: 20170120
  3. NEXPLANON [Suspect]
     Active Substance: ETONOGESTREL
     Dosage: 1 DF, UNK
     Route: 059

REACTIONS (5)
  - Complication of device insertion [Recovered/Resolved]
  - No adverse event [Unknown]
  - Product quality issue [Unknown]
  - Device expulsion [Recovered/Resolved]
  - Complication associated with device [Recovered/Resolved]

NARRATIVE: CASE EVENT DATE: 20170120
